FAERS Safety Report 25806000 (Version 1)
Quarter: 2025Q3

REPORT INFORMATION
  Report Type: Spontaneous
  Country: SG (occurrence: SG)
  Receive Date: 20250916
  Receipt Date: 20250916
  Transmission Date: 20251021
  Serious: Yes (Death, Other)
  Sender: ROCHE
  Company Number: SG-ROCHE-10000388003

PATIENT
  Age: 54 Year
  Sex: Female

DRUGS (1)
  1. KADCYLA [Suspect]
     Active Substance: ADO-TRASTUZUMAB EMTANSINE
     Indication: Breast cancer
     Route: 065

REACTIONS (3)
  - Death [Fatal]
  - Asthenia [Unknown]
  - Coma [Unknown]

NARRATIVE: CASE EVENT DATE: 20250601
